FAERS Safety Report 11415560 (Version 3)
Quarter: 2015Q3

REPORT INFORMATION
  Report Type: Spontaneous
  Country: IT (occurrence: IT)
  Receive Date: 20150825
  Receipt Date: 20150930
  Transmission Date: 20151125
  Serious: Yes (Other)
  Sender: FDA-Public Use
  Company Number: IT-TEVA-587618ACC

PATIENT
  Age: 47 Year
  Sex: Female
  Weight: 50 kg

DRUGS (7)
  1. FLUOROURACILE TEVA - 250 MG/5 ML SOLUZIONE PER INFUSIONE - TEVA ITALIA [Suspect]
     Active Substance: FLUOROURACIL
     Dates: start: 20150811
  2. SOLDESAM - 4 MG/ML SOLUZIONE INIETTABILE - LABORATORIO FARMACOLOGICO M [Concomitant]
     Indication: INFLAMMATION
     Dosage: 8 MG
     Route: 042
  3. OXALIPLATINO TEVA - 5MG/ML CONCENTRATO PER SOLUZIONE PER INFUSIONE - T [Concomitant]
     Indication: COLON CANCER
     Dosage: 70 MG
     Route: 042
  4. NAVOBAN - 5 MG/5 ML SOLUZIONE PER INFUSIONE E PER USO ORALE - LABORATO [Concomitant]
     Indication: NAUSEA
     Dosage: 5 MG
     Route: 042
  5. FLUOROURACILE TEVA - 250 MG/5 ML SOLUZIONE PER INFUSIONE - TEVA ITALIA [Suspect]
     Active Substance: FLUOROURACIL
     Indication: COLON CANCER
     Dosage: 1300 MG CYCLICAL
     Route: 042
     Dates: start: 20150323, end: 20150729
  6. CALCIO LEVOFOLINATO TEVA - 25 MG POLVERE PER SOLUZIONE INIETTABILE - T [Concomitant]
     Indication: PRODUCT USED FOR UNKNOWN INDICATION
     Dosage: 102 MG
     Route: 042
  7. ZANTAC - 50 MG/5 ML SOLUZIONE INIETTABILE PER USO ENDOVENOSO - GLAXOSM [Concomitant]
     Indication: PRODUCT USED FOR UNKNOWN INDICATION
     Dosage: 50 MG
     Route: 042

REACTIONS (4)
  - Blood glucose increased [Unknown]
  - Abdominal pain [Recovered/Resolved]
  - Transaminases increased [Unknown]
  - Vomiting [Recovered/Resolved]

NARRATIVE: CASE EVENT DATE: 20150812
